FAERS Safety Report 17313532 (Version 1)
Quarter: 2020Q1

REPORT INFORMATION
  Report Type: Spontaneous
  Country: US (occurrence: US)
  Receive Date: 20200124
  Receipt Date: 20200124
  Transmission Date: 20200409
  Serious: No
  Sender: FDA-Public Use
  Company Number: US-AMGEN-USASP2020009986

PATIENT
  Sex: Female

DRUGS (1)
  1. SENSIPAR [Suspect]
     Active Substance: CINACALCET HYDROCHLORIDE
     Indication: PRODUCT USED FOR UNKNOWN INDICATION
     Dosage: 30 MILLIGRAM, TID
     Route: 065

REACTIONS (4)
  - Adverse reaction [Unknown]
  - Mobility decreased [Unknown]
  - Fluid imbalance [Unknown]
  - Muscle spasms [Unknown]

NARRATIVE: CASE EVENT DATE: 202001
